FAERS Safety Report 6823621-5 (Version None)
Quarter: 2010Q3

REPORT INFORMATION
  Report Type: 
  Country: None (occurrence: None)
  Receive Date: 20100708
  Receipt Date: 20060815
  Transmission Date: 20110219
  Serious: No
  Sender: FDA-Public Use
  Company Number: US-PFIZER INC-2006102346

PATIENT
  Sex: Female

DRUGS (8)
  1. CHANTIX [Suspect]
     Indication: EX-TOBACCO USER
     Route: 048
     Dates: start: 20060701
  2. CELEBREX [Interacting]
     Indication: INTERVERTEBRAL DISC PROTRUSION
     Route: 048
  3. CELEBREX [Interacting]
     Indication: ARTHROPATHY
  4. VERAPAMIL [Concomitant]
  5. ENALAPRIL MALEATE [Concomitant]
  6. CRESTOR [Concomitant]
  7. OMEPRAZOLE [Concomitant]
  8. CLORAZEPATE DIPOTASSIUM [Concomitant]

REACTIONS (8)
  - DRUG INEFFECTIVE [None]
  - DRUG INTERACTION [None]
  - DRY EYE [None]
  - HEADACHE [None]
  - NAUSEA [None]
  - PAIN [None]
  - POOR QUALITY SLEEP [None]
  - VOMITING [None]
